FAERS Safety Report 6808803-0 (Version None)
Quarter: 2010Q2

REPORT INFORMATION
  Report Type: 
  Country: None (occurrence: None)
  Receive Date: 20100630
  Receipt Date: 20090922
  Transmission Date: 20101027
  Serious: No
  Sender: FDA-Public Use
  Company Number: US-PFIZER INC-2009272450

PATIENT
  Sex: Male
  Weight: 90.703 kg

DRUGS (5)
  1. XANAX [Suspect]
     Dosage: 2 MG, AS NEEDED
     Route: 065
     Dates: start: 19970101
  2. ARMODAFINIL [Interacting]
     Indication: ASTHENIA
     Dosage: 150 MG, 1X/DAY
     Route: 048
     Dates: start: 20090714
  3. MS CONTIN [Interacting]
     Dosage: 60 MG, 2X/DAY
     Dates: start: 20060101
  4. PERCOCET [Interacting]
     Dosage: 1/2 TO 1 TAB 10/625 MG TID PRN
     Route: 048
     Dates: start: 20060101
  5. TRAZODONE [Concomitant]
     Dosage: 300 MG, 1X/DAY
     Route: 048
     Dates: start: 19980101

REACTIONS (2)
  - POTENTIATING DRUG INTERACTION [None]
  - SOMNOLENCE [None]
